FAERS Safety Report 9633699 (Version 1)
Quarter: 2013Q4

REPORT INFORMATION
  Report Type: Spontaneous
  Country: US (occurrence: US)
  Receive Date: 20131021
  Receipt Date: 20131021
  Transmission Date: 20140711
  Serious: No
  Sender: FDA-Public Use
  Company Number: US-PFIZER INC-2013300366

PATIENT
  Sex: Male

DRUGS (4)
  1. LYRICA [Suspect]
     Indication: NEURALGIA
     Dosage: UNK
  2. KADIAN [Concomitant]
     Dosage: UNK
  3. NEXIUM [Concomitant]
     Dosage: UNK
  4. KLONOPIN [Concomitant]
     Dosage: UNK

REACTIONS (1)
  - Drug effect incomplete [Unknown]
